FAERS Safety Report 6751444-4 (Version None)
Quarter: 2010Q2

REPORT INFORMATION
  Report Type: 
  Country: None (occurrence: None)
  Receive Date: 20100602
  Receipt Date: 20100525
  Transmission Date: 20101027
  Serious: Yes (Hospitalization)
  Sender: FDA-Public Use
  Company Number: US-SANOFI-AVENTIS-2010SA019230

PATIENT
  Age: 70 Year
  Sex: Female
  Weight: 68.94 kg

DRUGS (9)
  1. LANTUS [Suspect]
     Indication: TYPE 2 DIABETES MELLITUS
     Dosage: DOSE:20 UNIT(S)
     Route: 058
  2. LANTUS [Suspect]
     Route: 058
     Dates: start: 20070101
  3. OPTICLICK [Suspect]
     Indication: TYPE 2 DIABETES MELLITUS
     Dates: start: 20070101
  4. HUMULIN R [Concomitant]
     Dosage: DOSE:100 UNIT(S)
  5. PREDNISONE TAB [Concomitant]
     Indication: LIVER DISORDER
  6. SPIRONOLACTONE [Concomitant]
     Dosage: IN MORNING
  7. ALENDRONATE SODIUM [Concomitant]
  8. CALCIUM CARBONATE [Concomitant]
  9. ALL OTHER THERAPEUTIC PRODUCTS [Concomitant]

REACTIONS (6)
  - BLOOD GLUCOSE DECREASED [None]
  - BLOOD GLUCOSE INCREASED [None]
  - DEHYDRATION [None]
  - DIARRHOEA [None]
  - RECTAL POLYP [None]
  - VISUAL IMPAIRMENT [None]
